FAERS Safety Report 11438859 (Version 3)
Quarter: 2015Q4

REPORT INFORMATION
  Report Type: Spontaneous
  Country: US (occurrence: None)
  Receive Date: 20150828
  Receipt Date: 20151020
  Transmission Date: 20160304
  Serious: Yes (Life-Threatening, Hospitalization, Other)
  Sender: FDA-Public Use
  Company Number: ADR-2015-01630

PATIENT
  Sex: Female

DRUGS (2)
  1. MORPHINE INTRATHECAL (10 MG/ML) [Suspect]
     Active Substance: MORPHINE
     Dosage: 2.47 MG/DAY
  2. COMPOUNDED BACLOFEN INTRATHECAL(1000 MCG/ML) [Suspect]
     Active Substance: BACLOFEN
     Dosage: 247 MCG/DAY

REACTIONS (13)
  - Loss of consciousness [None]
  - White blood cell count increased [None]
  - Incorrect drug administration rate [None]
  - Drug withdrawal syndrome [None]
  - Overdose [None]
  - No therapeutic response [None]
  - Movement disorder [None]
  - Infection [None]
  - Apparent death [None]
  - Malaise [None]
  - Device failure [None]
  - Device malfunction [None]
  - Laboratory test abnormal [None]
